FAERS Safety Report 9501468 (Version 1)
Quarter: 2013Q3

REPORT INFORMATION
  Report Type: Spontaneous
  Country: JP (occurrence: JP)
  Receive Date: 20130905
  Receipt Date: 20130905
  Transmission Date: 20140515
  Serious: Yes (Other)
  Sender: FDA-Public Use
  Company Number: JP-GLAXOSMITHKLINE-B0919996A

PATIENT
  Age: 9 Decade
  Sex: 0

DRUGS (1)
  1. VALTREX [Suspect]
     Indication: ORAL HERPES
     Route: 048
     Dates: start: 20130829

REACTIONS (1)
  - Melaena [Unknown]
